FAERS Safety Report 5622652-0 (Version None)
Quarter: 2008Q1

REPORT INFORMATION
  Report Type: 
  Country: None (occurrence: None)
  Receive Date: 20080211
  Receipt Date: 20080211
  Transmission Date: 20080703
  Serious: Yes (Hospitalization)
  Sender: FDA-Public Use
  Company Number: None

PATIENT
  Age: 18 Year
  Sex: Female
  Weight: 53.5244 kg

DRUGS (1)
  1. QUETIAPINE FUMARATE [Suspect]
     Indication: ANOREXIA NERVOSA
     Dosage: 150 MG BID
     Dates: start: 20080103, end: 20080108

REACTIONS (3)
  - HEART RATE INCREASED [None]
  - ORTHOSTATIC HYPOTENSION [None]
  - PRESYNCOPE [None]
